FAERS Safety Report 13178444 (Version 1)
Quarter: 2017Q1

REPORT INFORMATION
  Report Type: Spontaneous
  Country: US (occurrence: US)
  Receive Date: 20170201
  Receipt Date: 20170201
  Transmission Date: 20170428
  Serious: Yes (Disabling)
  Sender: FDA-Public Use
  Company Number: None

PATIENT
  Age: 9 Month
  Sex: Male
  Weight: 18.9 kg

DRUGS (3)
  1. BABY TEETHING (HYLAND HOMEOPATHIC) [Suspect]
     Active Substance: HOMEOPATHICS
     Indication: TEETHING
     Dosage: ?          QUANTITY:2 TABLET(S);?
     Route: 048
     Dates: start: 20140601, end: 20151001
  2. TYLENOL [Concomitant]
     Active Substance: ACETAMINOPHEN
  3. MOTRIN [Concomitant]
     Active Substance: IBUPROFEN

REACTIONS (8)
  - Dyskinesia [None]
  - Middle insomnia [None]
  - Developmental delay [None]
  - Autism [None]
  - Crying [None]
  - Muscle twitching [None]
  - Dyspnoea [None]
  - Cognitive disorder [None]

NARRATIVE: CASE EVENT DATE: 20140601
